FAERS Safety Report 16055901 (Version 1)
Quarter: 2019Q1

REPORT INFORMATION
  Report Type: Spontaneous
  Country: GB (occurrence: GB)
  Receive Date: 20190311
  Receipt Date: 20190311
  Transmission Date: 20190418
  Serious: Yes (Other)
  Sender: FDA-Public Use
  Company Number: GB-SUN PHARMACEUTICAL INDUSTRIES LTD-2019RR-201247

PATIENT
  Age: 84 Year
  Sex: Female

DRUGS (7)
  1. GLICLAZIDE [Concomitant]
     Active Substance: GLICLAZIDE
     Indication: PRODUCT USED FOR UNKNOWN INDICATION
     Dosage: 40MG AT NIGHT AND 80MG IN THE MORNING.
  2. ACETYLSALICYLIC ACID [Concomitant]
     Active Substance: ASPIRIN
     Indication: PRODUCT USED FOR UNKNOWN INDICATION
     Dosage: WITH FOOD
     Route: 065
  3. TRAVOPROST. [Concomitant]
     Active Substance: TRAVOPROST
     Indication: PRODUCT USED FOR UNKNOWN INDICATION
     Dosage: NIGHT
     Route: 047
  4. CLARITHROMYCIN. [Suspect]
     Active Substance: CLARITHROMYCIN
     Indication: INFECTED CYST
     Dosage: MORNING AND EVENING.
     Route: 048
     Dates: start: 20190130, end: 20190206
  5. CALCIUM AND COLECALCIFEROL [Concomitant]
     Indication: PRODUCT USED FOR UNKNOWN INDICATION
     Dosage: 400 UNIT/ 1.25MG ()
     Route: 065
  6. ATORVASTATIN [Concomitant]
     Active Substance: ATORVASTATIN
     Indication: PRODUCT USED FOR UNKNOWN INDICATION
     Dosage: DISCONTINUED IN CLARITHROMYCIN COURSE
     Route: 065
  7. METFORMIN [Concomitant]
     Active Substance: METFORMIN HYDROCHLORIDE
     Indication: DIABETES MELLITUS
     Dosage: ()
     Route: 065

REACTIONS (5)
  - Haemorrhagic cyst [Unknown]
  - Dysgeusia [Recovering/Resolving]
  - Urinary tract disorder [Unknown]
  - Oral pain [Recovered/Resolved with Sequelae]
  - Cyst rupture [Unknown]

NARRATIVE: CASE EVENT DATE: 20190131
